FAERS Safety Report 6050142-2 (Version None)
Quarter: 2009Q1

REPORT INFORMATION
  Report Type: 
  Country: None (occurrence: None)
  Receive Date: 20090121
  Receipt Date: 20090108
  Transmission Date: 20090719
  Serious: Yes (Death)
  Sender: FDA-Public Use
  Company Number: 2009-189308-NL

PATIENT
  Age: 76 Year
  Sex: Male

DRUGS (2)
  1. REMERON [Suspect]
     Indication: DEPRESSION
     Dosage: ORAL
     Route: 048
     Dates: start: 20081201, end: 20081226
  2. NON SPECIFIED MEDICATION [Concomitant]

REACTIONS (2)
  - COMPLETED SUICIDE [None]
  - DIARRHOEA [None]
